FAERS Safety Report 24048552 (Version 1)
Quarter: 2024Q3

REPORT INFORMATION
  Report Type: Spontaneous
  Country: US (occurrence: US)
  Receive Date: 20240704
  Receipt Date: 20240704
  Transmission Date: 20241017
  Serious: Yes (Life-Threatening, Hospitalization, Other)
  Sender: CIPLA
  Company Number: US-MLMSERVICE-20240613-PI099952-00312-1

PATIENT

DRUGS (2)
  1. TESTOSTERONE [Suspect]
     Active Substance: TESTOSTERONE
     Indication: Product used for unknown indication
     Dosage: UNK
     Route: 065
  2. TRENBOLONE [Suspect]
     Active Substance: TRENBOLONE
     Indication: Body modification
     Dosage: UNK
     Route: 065

REACTIONS (10)
  - Graft haemorrhage [Recovered/Resolved]
  - Hepatorenal syndrome [Recovering/Resolving]
  - Renal tubular necrosis [Recovering/Resolving]
  - Haemangioma [Recovering/Resolving]
  - Brain oedema [Recovering/Resolving]
  - Acute hepatic failure [Recovering/Resolving]
  - Acute kidney injury [Recovering/Resolving]
  - Hepatic necrosis [Recovering/Resolving]
  - Nephropathy [Recovering/Resolving]
  - Thrombocytopenia [Recovering/Resolving]
